FAERS Safety Report 9441947 (Version 1)
Quarter: 2013Q3

REPORT INFORMATION
  Report Type: Spontaneous
  Country: BR (occurrence: BR)
  Receive Date: 20130806
  Receipt Date: 20130806
  Transmission Date: 20140515
  Serious: Yes (Other)
  Sender: FDA-Public Use
  Company Number: BR-ROCHE-1257301

PATIENT
  Age: 74 Year
  Sex: Female
  Weight: 85 kg

DRUGS (4)
  1. ACTEMRA [Suspect]
     Indication: RHEUMATOID ARTHRITIS
     Route: 042
     Dates: start: 20130506
  2. GLUCOSAMINE SULFATE [Concomitant]
     Indication: RHEUMATOID ARTHRITIS
     Route: 065
     Dates: start: 20130302
  3. VENALOT (BRAZIL) [Concomitant]
     Indication: VARICOSE VEIN
     Dosage: 1 TABLET
     Route: 065
     Dates: start: 2008
  4. URO-VAXOM [Concomitant]
     Indication: URINARY INCONTINENCE
     Dosage: 1 TABLET
     Route: 065
     Dates: start: 20130402

REACTIONS (1)
  - Back pain [Recovered/Resolved]
